FAERS Safety Report 10706871 (Version 1)
Quarter: 2015Q1

REPORT INFORMATION
  Report Type: Spontaneous
  Country: US (occurrence: None)
  Receive Date: 20150112
  Receipt Date: 20150112
  Transmission Date: 20150721
  Serious: Yes (Life-Threatening, Other)
  Sender: FDA-Public Use
  Company Number: None

PATIENT
  Age: 55 Year
  Weight: 70.76 kg

DRUGS (1)
  1. NYSTATIN. [Suspect]
     Active Substance: NYSTATIN
     Indication: CANDIDA INFECTION
     Route: 048
     Dates: start: 20130904, end: 20150107

REACTIONS (13)
  - Rash pruritic [None]
  - Chest pain [None]
  - Vasculitis [None]
  - Chills [None]
  - Asthenia [None]
  - Heart rate increased [None]
  - Gastrooesophageal reflux disease [None]
  - Erythema [None]
  - Dizziness [None]
  - Headache [None]
  - Skin exfoliation [None]
  - Haematochezia [None]
  - Throat tightness [None]

NARRATIVE: CASE EVENT DATE: 20130904
